FAERS Safety Report 19232476 (Version 5)
Quarter: 2021Q3

REPORT INFORMATION
  Report Type: Report from Study
  Country: None (occurrence: US)
  Receive Date: 20210507
  Receipt Date: 20210713
  Transmission Date: 20211014
  Serious: Yes (Hospitalization, Disabling, Other)
  Sender: FDA-Public Use
  Company Number: US-ABBVIE-21K-163-3888841-00

PATIENT
  Age: 51 Year
  Sex: Male
  Weight: 97.61 kg

DRUGS (11)
  1. DOXYCYCLINE. [Concomitant]
     Active Substance: DOXYCYCLINE
     Indication: INFECTION
  2. RIFAMPIN. [Concomitant]
     Active Substance: RIFAMPIN
     Indication: INFECTION
  3. CLINDAMYCIN. [Concomitant]
     Active Substance: CLINDAMYCIN
     Indication: INFECTION
  4. HUMIRA [Suspect]
     Active Substance: ADALIMUMAB
     Indication: HIDRADENITIS
     Route: 058
     Dates: start: 201609, end: 201905
  5. HUMIRA [Suspect]
     Active Substance: ADALIMUMAB
     Route: 058
     Dates: start: 2020, end: 202011
  6. HUMIRA [Suspect]
     Active Substance: ADALIMUMAB
     Route: 058
     Dates: start: 202011, end: 202102
  7. HUMIRA [Suspect]
     Active Substance: ADALIMUMAB
     Indication: HIDRADENITIS
     Route: 058
     Dates: start: 202008, end: 2020
  8. HUMIRA [Suspect]
     Active Substance: ADALIMUMAB
     Route: 058
     Dates: start: 201912, end: 2020
  9. KEFLEX [Concomitant]
     Active Substance: CEPHALEXIN
     Indication: INFECTION
  10. LOSARTAN. [Concomitant]
     Active Substance: LOSARTAN
     Indication: HYPERTENSION
  11. HUMIRA [Suspect]
     Active Substance: ADALIMUMAB
     Route: 058
     Dates: start: 202104, end: 202104

REACTIONS (18)
  - Cyst [Unknown]
  - Transient ischaemic attack [Recovered/Resolved]
  - Infected cyst [Not Recovered/Not Resolved]
  - Scrotal cyst [Unknown]
  - Hidradenitis [Unknown]
  - Pyrexia [Unknown]
  - Osteomyelitis [Not Recovered/Not Resolved]
  - Post procedural haemorrhage [Recovered/Resolved]
  - Hidradenitis [Not Recovered/Not Resolved]
  - Paralysis [Recovered/Resolved]
  - Dermal cyst [Unknown]
  - Genital cyst [Not Recovered/Not Resolved]
  - Wound complication [Unknown]
  - Blindness [Not Recovered/Not Resolved]
  - Abdominal pain upper [Recovered/Resolved]
  - Haemorrhage [Unknown]
  - Infected cyst [Not Recovered/Not Resolved]
  - Cyst [Not Recovered/Not Resolved]

NARRATIVE: CASE EVENT DATE: 201609
